FAERS Safety Report 7190672-3 (Version None)
Quarter: 2010Q4

REPORT INFORMATION
  Report Type: 
  Country: None (occurrence: None)
  Receive Date: 20101223
  Receipt Date: 20101220
  Transmission Date: 20110411
  Serious: Yes (Death, Life-Threatening, Hospitalization)
  Sender: FDA-Public Use
  Company Number: JP-PFIZER INC-2010153925

PATIENT
  Age: 71 Year
  Sex: Female
  Weight: 42.5 kg

DRUGS (10)
  1. SUNITINIB MALATE [Suspect]
     Indication: RENAL CELL CARCINOMA
     Dosage: 25 MG, 1X/DAY
     Route: 048
     Dates: start: 20090602
  2. ETODOLAC [Concomitant]
     Dosage: UNK
     Route: 048
     Dates: start: 20090722
  3. MAG-LAX [Concomitant]
     Dosage: UNK
     Route: 048
  4. BIOFERMIN [Concomitant]
     Dosage: UNK
     Route: 048
  5. GASTER OD [Concomitant]
     Dosage: UNK
     Route: 048
  6. DECADRON [Concomitant]
     Dosage: UNK
     Route: 048
  7. VOLTAREN [Concomitant]
     Dosage: UNK
     Route: 054
  8. MYSLEE [Concomitant]
     Dosage: UNK
     Route: 048
     Dates: start: 20090709
  9. OXYCONTIN [Concomitant]
     Dosage: UNK
     Route: 048
  10. URSO 250 [Concomitant]
     Dosage: UNK
     Route: 048
     Dates: start: 20090714

REACTIONS (5)
  - ANAEMIA [None]
  - HYPERCALCAEMIA [None]
  - HYPOPROTEINAEMIA [None]
  - LIVER ABSCESS [None]
  - MULTI-ORGAN FAILURE [None]
